FAERS Safety Report 23125884 (Version 1)
Quarter: 2023Q4

REPORT INFORMATION
  Report Type: Spontaneous
  Country: RU (occurrence: None)
  Receive Date: 20231030
  Receipt Date: 20231030
  Transmission Date: 20240109
  Serious: Yes (Other)
  Sender: FDA-Public Use
  Company Number: 2023A206421

PATIENT
  Sex: Female

DRUGS (1)
  1. SYMBICORT [Suspect]
     Active Substance: BUDESONIDE\FORMOTEROL FUMARATE DIHYDRATE
     Indication: Symptomatic treatment
     Dosage: 80/4.5 MCG/DOSE, UNKNOWN UNKNOWN
     Route: 055

REACTIONS (2)
  - Seizure [Unknown]
  - Device malfunction [Unknown]
